FAERS Safety Report 6820616-2 (Version None)
Quarter: 2010Q3

REPORT INFORMATION
  Report Type: 
  Country: None (occurrence: None)
  Receive Date: 20100707
  Receipt Date: 20100623
  Transmission Date: 20110219
  Serious: Yes (Hospitalization)
  Sender: FDA-Public Use
  Company Number: JP-AMGEN-US397297

PATIENT
  Sex: Male

DRUGS (13)
  1. ENBREL [Suspect]
     Indication: RHEUMATOID ARTHRITIS
     Route: 058
     Dates: end: 20100222
  2. ENBREL [Suspect]
     Route: 058
     Dates: start: 20100415
  3. ENBREL [Suspect]
     Dosage: LYOPHILIZED: 50 MG ONCE WEEKLY
     Route: 058
     Dates: start: 20060911
  4. FLUITRAN [Concomitant]
     Indication: HYPERTENSION
     Route: 048
  5. OLMETEC [Concomitant]
     Indication: HYPERTENSION
     Route: 048
  6. PREDNISOLONE [Concomitant]
     Dates: start: 20060823
  7. PREDNISOLONE [Concomitant]
  8. ADALAT CC [Concomitant]
     Indication: HYPERTENSION
     Route: 048
  9. TAKEPRON [Concomitant]
     Route: 048
  10. MUCOSERUM [Concomitant]
     Indication: PRODUCTIVE COUGH
     Route: 048
  11. FELBINAC [Concomitant]
     Indication: RHEUMATOID ARTHRITIS
     Dosage: UNSPECIFIED
     Route: 061
  12. LASIX [Concomitant]
     Indication: HYPERTENSION
     Route: 048
  13. TANATRIL [Concomitant]
     Indication: HYPERTENSION
     Route: 048

REACTIONS (5)
  - CONDITION AGGRAVATED [None]
  - GASTRITIS [None]
  - PLEURAL ADHESION [None]
  - PLEURAL EFFUSION [None]
  - RHEUMATOID ARTHRITIS [None]
